FAERS Safety Report 13304643 (Version 2)
Quarter: 2017Q1

REPORT INFORMATION
  Report Type: Spontaneous
  Country: US (occurrence: US)
  Receive Date: 20170308
  Receipt Date: 20170321
  Transmission Date: 20170428
  Serious: No
  Sender: FDA-Public Use
  Company Number: US-BEH-2017078695

PATIENT
  Age: 34 Year
  Sex: Female

DRUGS (1)
  1. HIZENTRA [Suspect]
     Active Substance: HUMAN IMMUNOGLOBULIN G
     Indication: CROHN^S DISEASE
     Dosage: 9 G (45 ML), QW
     Route: 058
     Dates: start: 20170103

REACTIONS (3)
  - Injection site hypersensitivity [Unknown]
  - Injection site rash [Unknown]
  - Device allergy [Unknown]

NARRATIVE: CASE EVENT DATE: 20170228
